FAERS Safety Report 5344167-X (Version None)
Quarter: 2007Q2

REPORT INFORMATION
  Report Type: 
  Country: None (occurrence: None)
  Receive Date: 20070531
  Receipt Date: 20070531
  Transmission Date: 20071010
  Serious: Yes (Hospitalization)
  Sender: FDA-Public Use
  Company Number: None

PATIENT
  Sex: Male
  Weight: 115 kg

DRUGS (2)
  1. TAXOTERE [Suspect]
     Dosage: 180 MG
  2. PREDNISONE TAB [Suspect]
     Dosage: 90 MG

REACTIONS (9)
  - ABDOMINAL PAIN [None]
  - DEHYDRATION [None]
  - DIARRHOEA [None]
  - DYSPEPSIA [None]
  - FAECALOMA [None]
  - NAUSEA [None]
  - NO THERAPEUTIC RESPONSE [None]
  - ORAL INTAKE REDUCED [None]
  - WEIGHT DECREASED [None]
